FAERS Safety Report 16305031 (Version 1)
Quarter: 2019Q2

REPORT INFORMATION
  Report Type: Spontaneous
  Country: US (occurrence: US)
  Receive Date: 20190513
  Receipt Date: 20190513
  Transmission Date: 20190711
  Serious: No
  Sender: FDA-Public Use
  Company Number: US-AKRON, INC.-2066930

PATIENT
  Age: 88 Year
  Sex: Male

DRUGS (1)
  1. LEBALBUTEROL HCL [Suspect]
     Active Substance: LEVALBUTEROL HYDROCHLORIDE
     Route: 055

REACTIONS (2)
  - Nervousness [Recovered/Resolved]
  - Feeling jittery [Recovered/Resolved]
